FAERS Safety Report 24016110 (Version 4)
Quarter: 2024Q4

REPORT INFORMATION
  Report Type: Spontaneous
  Country: AT (occurrence: AT)
  Receive Date: 20240626
  Receipt Date: 20241126
  Transmission Date: 20250114
  Serious: No
  Sender: PFIZER
  Company Number: AT-PFIZER INC-202400201138

PATIENT

DRUGS (1)
  1. MEDROXYPROGESTERONE [Suspect]
     Active Substance: MEDROXYPROGESTERONE
     Dosage: UNK

REACTIONS (2)
  - Device defective [Unknown]
  - Device leakage [Unknown]
